FAERS Safety Report 9055790 (Version 1)
Quarter: 2013Q1

REPORT INFORMATION
  Report Type: Spontaneous
  Country: US (occurrence: US)
  Receive Date: 20130206
  Receipt Date: 20130206
  Transmission Date: 20140127
  Serious: No
  Sender: FDA-Public Use
  Company Number: US-ASTRAZENECA-2013SE07027

PATIENT
  Age: 70 Year
  Sex: Female
  Weight: 80.7 kg

DRUGS (10)
  1. NEXIUM [Suspect]
     Route: 048
     Dates: start: 2001
  2. DIOVAN [Concomitant]
     Indication: HYPERTENSION
     Dates: start: 2008
  3. SYMBALTA [Concomitant]
     Indication: FIBROMYALGIA
     Dates: start: 2010
  4. SYMBALTA [Concomitant]
     Indication: DEPRESSION
     Dates: start: 2010
  5. GABAPENTIN [Concomitant]
     Indication: PAIN IN EXTREMITY
     Dates: start: 2010
  6. GABAPENTIN [Concomitant]
     Indication: SLEEP DISORDER
     Dates: start: 2010
  7. LEVOTHYROID [Concomitant]
     Indication: HYPOTHYROIDISM
     Dates: start: 2001
  8. ZETIA [Concomitant]
     Indication: BLOOD CHOLESTEROL INCREASED
     Dates: start: 2010
  9. LEVOTHYROXINE [Concomitant]
  10. TYLENOL EXTENDED RELEASE [Concomitant]
     Indication: PAIN

REACTIONS (4)
  - Bone density decreased [Unknown]
  - Gallbladder disorder [Unknown]
  - Hypothyroidism [Unknown]
  - Off label use [Unknown]
